FAERS Safety Report 10128682 (Version 1)
Quarter: 2014Q2

REPORT INFORMATION
  Report Type: Spontaneous
  Country: CA (occurrence: CA)
  Receive Date: 20140428
  Receipt Date: 20140428
  Transmission Date: 20141212
  Serious: Yes (Life-Threatening, Hospitalization)
  Sender: FDA-Public Use
  Company Number: CA-VERTEX PHARMACEUTICALS INC-2014-002047

PATIENT
  Age: 53 Year
  Sex: Male
  Weight: 54 kg

DRUGS (3)
  1. INCIVEK [Suspect]
     Indication: HEPATITIS C
     Dosage: 2 DF, TID
     Route: 065
  2. PEGASYS RBV [Suspect]
     Indication: HEPATITIS C
     Dosage: 200 MG, QW
     Route: 058
  3. PEGASYS RBV [Suspect]
     Indication: HEPATITIS C
     Dosage: 180 ?G, 5 QD
     Route: 065

REACTIONS (7)
  - Septic shock [Unknown]
  - Renal failure acute [Unknown]
  - Bacteraemia [Unknown]
  - Compartment syndrome [Unknown]
  - Necrotising fasciitis staphylococcal [Unknown]
  - Necrotising fasciitis streptococcal [Unknown]
  - Cellulitis [Unknown]
